FAERS Safety Report 5253593-9 (Version None)
Quarter: 2007Q1

REPORT INFORMATION
  Report Type: 
  Country: None (occurrence: None)
  Receive Date: 20070301
  Receipt Date: 20070219
  Transmission Date: 20070707
  Serious: Yes (Other)
  Sender: FDA-Public Use
  Company Number: US-PFIZER INC-2007001991

PATIENT
  Sex: Male
  Weight: 80.7 kg

DRUGS (4)
  1. CHANTIX [Suspect]
     Indication: SMOKING CESSATION THERAPY
  2. LISINOPRIL [Concomitant]
     Indication: HYPERTENSION
  3. HUMALOG [Concomitant]
     Indication: DIABETES MELLITUS
     Dosage: FREQ:AS NEEDED
  4. LANTUS [Concomitant]
     Indication: DIABETES MELLITUS
     Dosage: TEXT:23 UNITS-FREQ:AT MIDNIGHT

REACTIONS (2)
  - BLOOD GLUCOSE INCREASED [None]
  - FEELING ABNORMAL [None]
